FAERS Safety Report 10159203 (Version 2)
Quarter: 2014Q2

REPORT INFORMATION
  Report Type: Spontaneous
  Country: CN (occurrence: None)
  Receive Date: 20140505
  Receipt Date: 20140509
  Transmission Date: 20141212
  Serious: Yes (Hospitalization)
  Sender: FDA-Public Use
  Company Number: 2014SA044460

PATIENT
  Age: 56 Year
  Sex: Female
  Weight: 68 kg

DRUGS (3)
  1. LANTUS SOLOSTAR [Suspect]
     Indication: DIABETES MELLITUS
     Route: 058
     Dates: start: 2004
  2. SOLOSTAR [Concomitant]
  3. NIFEDIPINE [Concomitant]

REACTIONS (8)
  - Asthenia [None]
  - Feeling abnormal [None]
  - Product colour issue [None]
  - Product deposit [None]
  - Product quality issue [None]
  - Poor quality drug administered [None]
  - Mood altered [None]
  - Product quality issue [None]
